FAERS Safety Report 5353806-9 (Version None)
Quarter: 2007Q2

REPORT INFORMATION
  Report Type: 
  Country: None (occurrence: None)
  Receive Date: 20070608
  Receipt Date: 20070608
  Transmission Date: 20071010
  Serious: Yes (Hospitalization)
  Sender: FDA-Public Use
  Company Number: None

PATIENT
  Age: 34 Year
  Sex: Male
  Weight: 89.8122 kg

DRUGS (1)
  1. CHANTIX [Suspect]
     Indication: SMOKING CESSATION THERAPY
     Dosage: 2 PILLS DAILY PO
     Route: 048
     Dates: start: 20070520, end: 20070529

REACTIONS (4)
  - AMNESIA [None]
  - CONFUSIONAL STATE [None]
  - DELIRIUM [None]
  - PANIC ATTACK [None]
